FAERS Safety Report 22375209 (Version 1)
Quarter: 2023Q2

REPORT INFORMATION
  Report Type: Spontaneous
  Country: US (occurrence: US)
  Receive Date: 20230527
  Receipt Date: 20230527
  Transmission Date: 20230722
  Serious: No
  Sender: FDA-Public Use
  Company Number: US-Accord-264767

PATIENT
  Age: 49 Year
  Sex: Male
  Weight: 55.34 kg

DRUGS (6)
  1. METHOTREXATE [Suspect]
     Active Substance: METHOTREXATE
     Indication: Inflammatory bowel disease
     Dosage: 50MG/2ML VIAL. 1 ML SUBCU INTO ABDOMEN ONCE A WEEK
     Route: 058
     Dates: start: 202108
  2. PREDNISONE [Concomitant]
     Active Substance: PREDNISONE
     Dosage: 1 MG
  3. STELARA [Concomitant]
     Active Substance: USTEKINUMAB
     Dosage: 1 EVERY 4-10 WEEKS
  4. TESTOSTERONE [Concomitant]
     Active Substance: TESTOSTERONE
     Route: 061
  5. KETOTIFEN [Concomitant]
     Active Substance: KETOTIFEN
  6. RIZATRIPTAN [Concomitant]
     Active Substance: RIZATRIPTAN

REACTIONS (2)
  - Product quality issue [Unknown]
  - Off label use [Unknown]

NARRATIVE: CASE EVENT DATE: 20220522
